FAERS Safety Report 8301936-1 (Version None)
Quarter: 2012Q2

REPORT INFORMATION
  Report Type: 
  Country: None (occurrence: None)
  Receive Date: 20120420
  Receipt Date: 20120409
  Transmission Date: 20120825
  Serious: Yes (Other)
  Sender: FDA-Public Use
  Company Number: US-ROCHE-782911

PATIENT
  Sex: Male
  Weight: 65.83 kg

DRUGS (3)
  1. CLARAVIS [Suspect]
     Indication: ACNE
     Route: 048
     Dates: start: 20040316, end: 20040515
  2. ACCUTANE [Suspect]
     Indication: ACNE
     Route: 048
     Dates: start: 20040521, end: 20040621
  3. CLARAVIS [Suspect]
     Dates: start: 20040630, end: 20040829

REACTIONS (6)
  - PROCTITIS ULCERATIVE [None]
  - DRY SKIN [None]
  - EPISTAXIS [None]
  - EMOTIONAL DISTRESS [None]
  - INFLAMMATORY BOWEL DISEASE [None]
  - ARTHRALGIA [None]
